FAERS Safety Report 10997647 (Version 1)
Quarter: 2015Q2

REPORT INFORMATION
  Report Type: Spontaneous
  Country: US (occurrence: US)
  Receive Date: 20150408
  Receipt Date: 20150408
  Transmission Date: 20150821
  Serious: No
  Sender: FDA-Public Use
  Company Number: US-BANPHARM-20142936

PATIENT
  Age: 75 Year
  Sex: Female
  Weight: 61.24 kg

DRUGS (2)
  1. ALEVE [Suspect]
     Active Substance: NAPROXEN SODIUM
     Dosage: 1 DF, PRN,
     Route: 048
     Dates: start: 20140726, end: 20140727
  2. METHATREXATE [Concomitant]
     Active Substance: METHOTREXATE
     Dosage: 5 CAPS PER WEEK

REACTIONS (1)
  - Rash [Not Recovered/Not Resolved]

NARRATIVE: CASE EVENT DATE: 20140727
